FAERS Safety Report 9440290 (Version 1)
Quarter: 2013Q3

REPORT INFORMATION
  Report Type: Report from Study
  Country: IN (occurrence: IN)
  Receive Date: 20130805
  Receipt Date: 20130805
  Transmission Date: 20140515
  Serious: Yes (Death, Other)
  Sender: FDA-Public Use
  Company Number: PHHY2012IN009775

PATIENT
  Age: 54 Year
  Sex: Female

DRUGS (2)
  1. GLIVEC [Suspect]
     Indication: CHRONIC MYELOID LEUKAEMIA
     Dosage: 600 MG, DAILY
     Route: 048
  2. GLIVEC [Suspect]
     Dosage: 800 MG
     Route: 048

REACTIONS (2)
  - Death [Fatal]
  - Blast crisis in myelogenous leukaemia [Unknown]
